FAERS Safety Report 20004471 (Version 1)
Quarter: 2021Q4

REPORT INFORMATION
  Report Type: Spontaneous
  Country: DE (occurrence: DE)
  Receive Date: 20211028
  Receipt Date: 20211028
  Transmission Date: 20220303
  Serious: Yes (Hospitalization, Other)
  Sender: FDA-Public Use
  Company Number: DE-AMGEN-DEUSP2021160831

PATIENT
  Age: 63 Year
  Sex: Female

DRUGS (2)
  1. PROLIA [Suspect]
     Active Substance: DENOSUMAB
     Indication: Osteoporosis
     Dosage: 60 MILLIGRAM, Q6MO
     Route: 065
  2. ELIQUIS [Concomitant]
     Active Substance: APIXABAN

REACTIONS (7)
  - Osteonecrosis of jaw [Recovering/Resolving]
  - Dental caries [Recovering/Resolving]
  - Hemiplegia [Unknown]
  - Hemiparesis [Unknown]
  - Hypokalaemia [Recovering/Resolving]
  - Ill-defined disorder [Unknown]
  - Depression [Unknown]

NARRATIVE: CASE EVENT DATE: 20180501
